FAERS Safety Report 19213412 (Version 1)
Quarter: 2021Q2

REPORT INFORMATION
  Report Type: Spontaneous
  Country: KR (occurrence: KR)
  Receive Date: 20210504
  Receipt Date: 20210504
  Transmission Date: 20210717
  Serious: Yes (Hospitalization, Disabling)
  Sender: FDA-Public Use
  Company Number: KR-FRESENIUS KABI-FK202104502

PATIENT
  Age: 57 Year
  Sex: Female

DRUGS (2)
  1. LIDOCAINE/EPINEPHRINE (MANUFACTURER UNKNOWN) [Suspect]
     Active Substance: EPINEPHRINE BITARTRATE\LIDOCAINE HYDROCHLORIDE
     Indication: GENERAL ANAESTHESIA
     Route: 050
  2. EPINEPHRINE. [Suspect]
     Active Substance: EPINEPHRINE
     Indication: GENERAL ANAESTHESIA
     Route: 061

REACTIONS (2)
  - Optic ischaemic neuropathy [Recovered/Resolved with Sequelae]
  - Blindness [Not Recovered/Not Resolved]
